FAERS Safety Report 7808779-3 (Version None)
Quarter: 2011Q4

REPORT INFORMATION
  Report Type: 
  Country: None (occurrence: None)
  Receive Date: 20111006
  Receipt Date: 20110920
  Transmission Date: 20120403
  Serious: Yes (Hospitalization)
  Sender: FDA-Public Use
  Company Number: 2011MA014196

PATIENT
  Age: 28 Year
  Sex: Male

DRUGS (9)
  1. SODIUM CHLORIDE 0.9% [Suspect]
     Indication: RASH
     Dosage: 100 ML;1X; IV
     Route: 042
  2. SODIUM CHLORIDE 0.9% [Suspect]
     Indication: PRURITUS
     Dosage: 100 ML;1X; IV
     Route: 042
  3. SODIUM CHLORIDE 0.9% [Suspect]
     Indication: ERYTHEMA
     Dosage: 100 ML;1X; IV
     Route: 042
  4. RANITIDINE [Suspect]
     Indication: PRURITUS
     Dosage: 50 MG;1X;IV
     Route: 042
  5. RANITIDINE [Suspect]
     Indication: RASH
     Dosage: 50 MG;1X;IV
     Route: 042
  6. RANITIDINE [Suspect]
     Indication: ERYTHEMA
     Dosage: 50 MG;1X;IV
     Route: 042
  7. PHENIRAMINE (PHENIRAMINE) [Suspect]
     Indication: PRURITUS
     Dosage: 45 MG;1X;IV
     Route: 042
  8. PHENIRAMINE (PHENIRAMINE) [Suspect]
     Indication: ERYTHEMA
     Dosage: 45 MG;1X;IV
     Route: 042
  9. PHENIRAMINE (PHENIRAMINE) [Suspect]
     Indication: RASH
     Dosage: 45 MG;1X;IV
     Route: 042

REACTIONS (4)
  - HYPOTENSION [None]
  - NODAL RHYTHM [None]
  - DIZZINESS [None]
  - BRADYCARDIA [None]
